FAERS Safety Report 20687527 (Version 1)
Quarter: 2022Q2

REPORT INFORMATION
  Report Type: Spontaneous
  Country: IT (occurrence: IT)
  Receive Date: 20220408
  Receipt Date: 20220408
  Transmission Date: 20220721
  Serious: No
  Sender: FDA-Public Use
  Company Number: IT-ETON PHARMACEUTICALS, INC-2022ETO000061

PATIENT
  Age: 25 Month
  Sex: Female

DRUGS (1)
  1. ALKINDI SPRINKLE [Suspect]
     Active Substance: HYDROCORTISONE
     Indication: Adrenogenital syndrome
     Dosage: UNK

REACTIONS (2)
  - Product use complaint [Unknown]
  - No adverse event [Unknown]
